FAERS Safety Report 4554618-6 (Version None)
Quarter: 2005Q1

REPORT INFORMATION
  Report Type: 
  Country: None (occurrence: None)
  Receive Date: 20050118
  Receipt Date: 20050113
  Transmission Date: 20050727
  Serious: Yes (Other)
  Sender: FDA-Public Use
  Company Number: PHEH2005US00965

PATIENT
  Sex: Female

DRUGS (2)
  1. ANTIPSYCHOTICS [Concomitant]
  2. TRILEPTAL [Suspect]

REACTIONS (1)
  - BLOOD PROLACTIN INCREASED [None]
